FAERS Safety Report 14322108 (Version 11)
Quarter: 2018Q2

REPORT INFORMATION
  Report Type: Spontaneous
  Country: GB (occurrence: GB)
  Receive Date: 20171225
  Receipt Date: 20180615
  Transmission Date: 20180711
  Serious: Yes (Disabling, Other)
  Sender: FDA-Public Use
  Company Number: GB-JNJFOC-20171223704

PATIENT
  Age: 30 Year
  Sex: Male
  Weight: 81 kg

DRUGS (5)
  1. SERTRALINE [Concomitant]
     Active Substance: SERTRALINE HYDROCHLORIDE
     Indication: PRODUCT USED FOR UNKNOWN INDICATION
     Dosage: AS ADVISED BY CONSULTANT
     Route: 065
     Dates: start: 20171120
  2. DIPROSALIC [Concomitant]
     Active Substance: BETAMETHASONE DIPROPIONATE
     Indication: PRODUCT USED FOR UNKNOWN INDICATION
     Dosage: APPLY
     Route: 065
     Dates: start: 20170928
  3. ZIRTEK [Suspect]
     Active Substance: CETIRIZINE HYDROCHLORIDE
     Route: 048
  4. ZIRTEK [Suspect]
     Active Substance: CETIRIZINE HYDROCHLORIDE
     Indication: PSORIASIS
     Dosage: LAST PERIOD 1 (DAYS)
     Route: 048
     Dates: start: 20170928, end: 20171129
  5. DOVOBET [Concomitant]
     Active Substance: BETAMETHASONE\CALCIPOTRIENE
     Indication: PRODUCT USED FOR UNKNOWN INDICATION
     Dosage: APPLY AT NIGHT
     Route: 065
     Dates: start: 20170928

REACTIONS (1)
  - Acute psychosis [Recovered/Resolved]

NARRATIVE: CASE EVENT DATE: 20171129
